FAERS Safety Report 7770501-7 (Version None)
Quarter: 2011Q3

REPORT INFORMATION
  Report Type: 
  Country: None (occurrence: None)
  Receive Date: 20110922
  Receipt Date: 20100806
  Transmission Date: 20111222
  Serious: No
  Sender: FDA-Public Use
  Company Number: US-ASTRAZENECA-2010SE36918

PATIENT
  Age: 20175 Day
  Sex: Female
  Weight: 72.6 kg

DRUGS (7)
  1. SEROQUEL [Suspect]
     Route: 048
  2. CHOLESTEROL MEDICATION [Concomitant]
     Indication: HYPERCHOLESTEROLAEMIA
  3. SEROQUEL [Suspect]
     Route: 048
  4. DIOVAN [Concomitant]
     Indication: HYPERTENSION
  5. LORAZEPAM [Concomitant]
     Indication: ANXIETY
  6. SEROQUEL [Suspect]
     Indication: BIPOLAR DISORDER
     Route: 048
     Dates: start: 20050101
  7. SEROQUEL [Suspect]
     Indication: SCHIZOPHRENIC RELATIVE
     Route: 048
     Dates: start: 20050101

REACTIONS (7)
  - MANIA [None]
  - MALAISE [None]
  - DIZZINESS [None]
  - DRUG DOSE OMISSION [None]
  - BLOOD PRESSURE INCREASED [None]
  - INSOMNIA [None]
  - DIARRHOEA [None]
